FAERS Safety Report 7370046-2 (Version None)
Quarter: 2011Q1

REPORT INFORMATION
  Report Type: 
  Country: None (occurrence: None)
  Receive Date: 20110323
  Receipt Date: 20110118
  Transmission Date: 20110831
  Serious: No
  Sender: FDA-Public Use
  Company Number: US-BAYER-2011-006017

PATIENT
  Sex: Male
  Weight: 79 kg

DRUGS (1)
  1. ALEVE (CAPLET) [Suspect]
     Indication: BACK PAIN
     Dosage: 2 DF, ONCE, BOTTLE COUNT 50S
     Route: 048
     Dates: start: 20110116

REACTIONS (1)
  - BACK PAIN [None]
